FAERS Safety Report 23524489 (Version 1)
Quarter: 2024Q1

REPORT INFORMATION
  Report Type: Spontaneous
  Country: GB (occurrence: GB)
  Receive Date: 20240214
  Receipt Date: 20240214
  Transmission Date: 20240409
  Serious: Yes (Death, Other)
  Sender: FDA-Public Use
  Company Number: GB-AMGEN-GBRSP2024029753

PATIENT
  Age: 61 Year
  Sex: Male

DRUGS (14)
  1. APREMILAST [Suspect]
     Active Substance: APREMILAST
     Indication: Product used for unknown indication
     Dosage: 30 MILLIGRAM, BID
     Route: 065
     Dates: start: 20151028
  2. ALLOPURINOL [Concomitant]
     Active Substance: ALLOPURINOL
     Dosage: UNK
     Dates: start: 20181102
  3. ATORVASTATIN [Concomitant]
     Active Substance: ATORVASTATIN
     Dosage: UNK
     Dates: start: 20200918
  4. BISOPROLOL [Concomitant]
     Active Substance: BISOPROLOL\BISOPROLOL FUMARATE
     Indication: Cardiac failure
     Dosage: UNK
     Dates: start: 20200124, end: 20231103
  5. DAPAGLIFLOZIN [Concomitant]
     Active Substance: DAPAGLIFLOZIN
     Indication: Cardiac failure
     Dosage: UNK
     Dates: start: 20220121
  6. EPLERENONE [Concomitant]
     Active Substance: EPLERENONE
     Dosage: UNK
     Dates: start: 20220906
  7. FLUOXETINE [Concomitant]
     Active Substance: FLUOXETINE HYDROCHLORIDE
     Dosage: UNK
     Dates: start: 20181102
  8. LANSOPRAZOLE [Concomitant]
     Active Substance: LANSOPRAZOLE
     Dosage: UNK
     Dates: start: 20220922
  9. SACUBITRIL\VALSARTAN [Concomitant]
     Active Substance: SACUBITRIL\VALSARTAN
     Indication: Cardiac failure
     Dosage: UNK
     Dates: start: 20220720
  10. ENOXAPARIN SODIUM [Concomitant]
     Active Substance: ENOXAPARIN SODIUM
     Dosage: UNK
  11. DEXAMETHASONE [Concomitant]
     Active Substance: DEXAMETHASONE
     Dosage: 4 MILLIGRAM, BID
     Dates: start: 20231008
  12. DEXAMETHASONE [Concomitant]
     Active Substance: DEXAMETHASONE
     Dosage: 8 MILLIGRAM, BID
  13. LEVETIRACETAM [Concomitant]
     Active Substance: LEVETIRACETAM
     Dosage: UNK
  14. LEVETIRACETAM [Concomitant]
     Active Substance: LEVETIRACETAM
     Dosage: 1 GRAM, BID

REACTIONS (16)
  - Metastatic malignant melanoma [Fatal]
  - Fall [Unknown]
  - Muscular weakness [Unknown]
  - Seizure [Unknown]
  - Confusional state [Unknown]
  - Speech disorder [Unknown]
  - Sensory loss [Unknown]
  - Asthenia [Unknown]
  - Intracranial mass [Unknown]
  - Adrenal mass [Unknown]
  - Axillary mass [Unknown]
  - Brain oedema [Unknown]
  - COVID-19 [Unknown]
  - Intraventricular haemorrhage [Unknown]
  - Vomiting [Unknown]
  - Headache [Unknown]

NARRATIVE: CASE EVENT DATE: 20231013
